FAERS Safety Report 7497657-8 (Version None)
Quarter: 2011Q2

REPORT INFORMATION
  Report Type: 
  Country: None (occurrence: None)
  Receive Date: 20110523
  Receipt Date: 20110518
  Transmission Date: 20111010
  Serious: Yes (Other)
  Sender: FDA-Public Use
  Company Number: GXKR2011DE01743

PATIENT
  Sex: Male
  Weight: 82 kg

DRUGS (1)
  1. LORATADINE [Suspect]
     Indication: SEASONAL ALLERGY
     Dosage: 10 MG, UNK
     Route: 048
     Dates: start: 20100301, end: 20100501

REACTIONS (3)
  - DIPLOPIA [None]
  - VISION BLURRED [None]
  - HEADACHE [None]
